FAERS Safety Report 17215740 (Version 1)
Quarter: 2019Q4

REPORT INFORMATION
  Report Type: Report from Study
  Country: IT (occurrence: IT)
  Receive Date: 20191230
  Receipt Date: 20191230
  Transmission Date: 20200122
  Serious: Yes (Other)
  Sender: FDA-Public Use
  Company Number: IT-MYLANLABS-2019M1129385

PATIENT
  Age: 77 Year
  Sex: Female

DRUGS (5)
  1. GLADIO [Concomitant]
     Active Substance: ACECLOFENAC
     Dosage: UNK
     Route: 048
  2. ACICLOVIR [Suspect]
     Active Substance: ACYCLOVIR
     Indication: PRODUCT USED FOR UNKNOWN INDICATION
     Dosage: UNK
     Route: 003
  3. EUCOMBIDEX [Concomitant]
     Dosage: 0.3 PERCENT PLUS 0.1 PERCENT, EYEWASH
  4. GLIATILIN [Concomitant]
     Active Substance: CHOLINE ALFOSCERATE
     Dosage: UNK
     Route: 048
  5. XANAX [Concomitant]
     Active Substance: ALPRAZOLAM
     Dosage: UNK
     Route: 048

REACTIONS (2)
  - Lip oedema [Unknown]
  - Off label use [Unknown]

NARRATIVE: CASE EVENT DATE: 20190418
